FAERS Safety Report 16084563 (Version 1)
Quarter: 2019Q1

REPORT INFORMATION
  Report Type: Report from Study
  Country: JP (occurrence: JP)
  Receive Date: 20190318
  Receipt Date: 20190318
  Transmission Date: 20190418
  Serious: Yes (Other)
  Sender: FDA-Public Use
  Company Number: JP-JNJFOC-20190320977

PATIENT
  Age: 48 Year
  Sex: Female

DRUGS (161)
  1. ADALIMUMAB [Concomitant]
     Active Substance: ADALIMUMAB
     Indication: BEHCET^S SYNDROME
     Route: 065
  2. MESALAZINE [Concomitant]
     Active Substance: MESALAMINE
     Route: 048
     Dates: start: 20180410, end: 20180423
  3. FAMOTIDINE. [Concomitant]
     Active Substance: FAMOTIDINE
     Route: 048
     Dates: start: 20171219, end: 20171224
  4. FAMOTIDINE. [Concomitant]
     Active Substance: FAMOTIDINE
     Route: 048
     Dates: start: 20171226, end: 20180103
  5. FAMOTIDINE. [Concomitant]
     Active Substance: FAMOTIDINE
     Route: 048
     Dates: start: 20180313, end: 20180319
  6. ALFACALCIDOL [Concomitant]
     Active Substance: ALFACALCIDOL
     Route: 048
     Dates: start: 20180206, end: 20180305
  7. FOSAMAC [Concomitant]
     Active Substance: ALENDRONATE SODIUM
     Route: 048
     Dates: start: 20180319, end: 20180402
  8. AZANIN [Concomitant]
     Active Substance: AZATHIOPRINE
     Route: 048
     Dates: start: 20180215, end: 20180221
  9. AZANIN [Concomitant]
     Active Substance: AZATHIOPRINE
     Route: 048
     Dates: start: 20180222, end: 20180227
  10. OXYCONTIN [Concomitant]
     Active Substance: OXYCODONE HYDROCHLORIDE
     Route: 048
     Dates: start: 20180508, end: 20180523
  11. OXINORM [Concomitant]
     Route: 048
     Dates: start: 20180607
  12. OXINORM [Concomitant]
     Route: 048
     Dates: start: 20180625
  13. OXINORM [Concomitant]
     Route: 048
     Dates: start: 20180702
  14. OXINORM [Concomitant]
     Route: 048
     Dates: start: 20180718
  15. OXINORM [Concomitant]
     Route: 048
     Dates: start: 20181023
  16. NOVAMIN [Concomitant]
     Route: 065
     Dates: start: 20180818, end: 20181127
  17. BROTIZOLAM [Concomitant]
     Active Substance: BROTIZOLAM
     Route: 048
     Dates: start: 20180716, end: 20180722
  18. BROTIZOLAM [Concomitant]
     Active Substance: BROTIZOLAM
     Route: 048
     Dates: start: 20180820
  19. KYTRIL [Concomitant]
     Active Substance: GRANISETRON HYDROCHLORIDE
     Route: 065
     Dates: start: 20180910
  20. KYTRIL [Concomitant]
     Active Substance: GRANISETRON HYDROCHLORIDE
     Route: 065
     Dates: start: 20181105, end: 20181107
  21. ZINC. [Concomitant]
     Active Substance: ZINC
     Route: 048
     Dates: start: 20181010, end: 20181029
  22. ZINC. [Concomitant]
     Active Substance: ZINC
     Route: 048
     Dates: start: 20181116, end: 20181127
  23. REMICADE [Suspect]
     Active Substance: INFLIXIMAB
     Indication: BEHCET^S SYNDROME
     Route: 042
     Dates: start: 20171219, end: 20180205
  24. MESALAZINE [Concomitant]
     Active Substance: MESALAMINE
     Route: 048
     Dates: start: 20171226, end: 20180103
  25. MESALAZINE [Concomitant]
     Active Substance: MESALAMINE
     Route: 048
     Dates: start: 20180321, end: 20180408
  26. COLCHICINE. [Concomitant]
     Active Substance: COLCHICINE
     Route: 048
     Dates: start: 20180321, end: 20180408
  27. FAMOTIDINE. [Concomitant]
     Active Substance: FAMOTIDINE
     Route: 048
     Dates: start: 20180410, end: 20180423
  28. ALFACALCIDOL [Concomitant]
     Active Substance: ALFACALCIDOL
     Route: 048
     Dates: start: 20180321, end: 20180408
  29. ALFACALCIDOL [Concomitant]
     Active Substance: ALFACALCIDOL
     Route: 048
     Dates: start: 20180410, end: 20180423
  30. ZOLPIDEM TARTRATE. [Concomitant]
     Active Substance: ZOLPIDEM TARTRATE
     Route: 048
     Dates: start: 20180702
  31. CELECOX [Concomitant]
     Active Substance: CELECOXIB
     Route: 048
     Dates: start: 20171219, end: 20171224
  32. CELECOX [Concomitant]
     Active Substance: CELECOXIB
     Route: 048
     Dates: start: 20180313, end: 20180319
  33. CELECOX [Concomitant]
     Active Substance: CELECOXIB
     Route: 048
     Dates: start: 20180321, end: 20180408
  34. OXINORM [Concomitant]
     Route: 048
     Dates: start: 20180508
  35. OXINORM [Concomitant]
     Route: 048
     Dates: start: 20180615
  36. OXINORM [Concomitant]
     Route: 048
     Dates: start: 20180627
  37. OXINORM [Concomitant]
     Route: 048
     Dates: start: 20180629
  38. BELSOMRA [Concomitant]
     Active Substance: SUVOREXANT
     Route: 048
     Dates: start: 20181203, end: 20181219
  39. METHYCOBAL [Concomitant]
     Active Substance: METHYLCOBALAMIN
     Route: 048
     Dates: start: 20181203, end: 20181219
  40. PREDNISOLONE. [Suspect]
     Active Substance: PREDNISOLONE
     Indication: PRODUCT USED FOR UNKNOWN INDICATION
     Route: 048
     Dates: start: 20180602, end: 20181127
  41. MESALAZINE [Concomitant]
     Active Substance: MESALAMINE
     Route: 048
     Dates: start: 20180313, end: 20180319
  42. MESALAZINE [Concomitant]
     Active Substance: MESALAMINE
     Route: 048
     Dates: start: 20180813, end: 20181127
  43. COLCHICINE. [Concomitant]
     Active Substance: COLCHICINE
     Route: 048
     Dates: start: 20180105, end: 20180305
  44. COLCHICINE. [Concomitant]
     Active Substance: COLCHICINE
     Route: 048
     Dates: start: 20180313, end: 20180319
  45. ZOLPIDEM TARTRATE. [Concomitant]
     Active Substance: ZOLPIDEM TARTRATE
     Route: 048
     Dates: start: 20180105, end: 20180305
  46. ZOLPIDEM TARTRATE. [Concomitant]
     Active Substance: ZOLPIDEM TARTRATE
     Route: 048
     Dates: start: 20180313, end: 20180519
  47. ZOLPIDEM TARTRATE. [Concomitant]
     Active Substance: ZOLPIDEM TARTRATE
     Route: 048
     Dates: start: 20180604
  48. ZOLPIDEM TARTRATE. [Concomitant]
     Active Substance: ZOLPIDEM TARTRATE
     Route: 048
     Dates: start: 20180715, end: 20180721
  49. FOSAMAC [Concomitant]
     Active Substance: ALENDRONATE SODIUM
     Route: 048
     Dates: start: 20180101, end: 20180305
  50. OXYCONTIN [Concomitant]
     Active Substance: OXYCODONE HYDROCHLORIDE
     Route: 048
     Dates: start: 20180524, end: 20180812
  51. OXYCONTIN [Concomitant]
     Active Substance: OXYCODONE HYDROCHLORIDE
     Route: 048
     Dates: start: 20181105, end: 20181219
  52. OXINORM [Concomitant]
     Route: 048
     Dates: start: 20181005
  53. OXINORM [Concomitant]
     Route: 048
     Dates: start: 20181019
  54. MARZULENE S [Concomitant]
     Active Substance: GLUTAMINE\SODIUM GUALENATE
     Route: 065
     Dates: start: 20180512, end: 20180813
  55. DOMPERIDONE [Concomitant]
     Active Substance: DOMPERIDONE
     Route: 065
     Dates: start: 20180524
  56. BROTIZOLAM [Concomitant]
     Active Substance: BROTIZOLAM
     Route: 048
     Dates: start: 20180728
  57. KYTRIL [Concomitant]
     Active Substance: GRANISETRON HYDROCHLORIDE
     Route: 065
     Dates: start: 20180829
  58. COLCHICINE. [Concomitant]
     Active Substance: COLCHICINE
     Route: 048
     Dates: start: 20181203, end: 20181219
  59. FAMOTIDINE. [Concomitant]
     Active Substance: FAMOTIDINE
     Route: 048
     Dates: start: 20180321, end: 20180408
  60. ZOLPIDEM TARTRATE. [Concomitant]
     Active Substance: ZOLPIDEM TARTRATE
     Route: 048
     Dates: start: 20180321, end: 20180408
  61. ZOLPIDEM TARTRATE. [Concomitant]
     Active Substance: ZOLPIDEM TARTRATE
     Route: 048
     Dates: start: 20180410, end: 20180423
  62. CELECOX [Concomitant]
     Active Substance: CELECOXIB
     Route: 048
     Dates: start: 20171226, end: 20180103
  63. FOSAMAC [Concomitant]
     Active Substance: ALENDRONATE SODIUM
     Route: 048
     Dates: start: 20180521, end: 20180910
  64. OXYCONTIN [Concomitant]
     Active Substance: OXYCODONE HYDROCHLORIDE
     Route: 048
     Dates: start: 20180813, end: 20181023
  65. OXINORM [Concomitant]
     Route: 048
     Dates: start: 20180611
  66. OXINORM [Concomitant]
     Route: 048
     Dates: start: 20180622
  67. OXINORM [Concomitant]
     Route: 048
     Dates: start: 20180918
  68. OXINORM [Concomitant]
     Route: 048
     Dates: start: 20180925
  69. OXINORM [Concomitant]
     Route: 048
     Dates: start: 20180928
  70. OXINORM [Concomitant]
     Route: 048
     Dates: start: 20181001
  71. OXINORM [Concomitant]
     Route: 048
     Dates: start: 20181003
  72. OXINORM [Concomitant]
     Route: 048
     Dates: start: 20181010
  73. OXINORM [Concomitant]
     Route: 048
     Dates: start: 20181104
  74. SENNOSIDE A+B [Concomitant]
     Active Substance: SENNOSIDES A AND B
     Route: 048
     Dates: start: 20180522, end: 20180522
  75. BAKTAR [Concomitant]
     Active Substance: SULFAMETHOXAZOLE\TRIMETHOPRIM
     Route: 048
     Dates: start: 20181203, end: 20181219
  76. BROTIZOLAM [Concomitant]
     Active Substance: BROTIZOLAM
     Route: 048
     Dates: start: 20180723
  77. BROTIZOLAM [Concomitant]
     Active Substance: BROTIZOLAM
     Route: 048
     Dates: start: 20180731
  78. KYTRIL [Concomitant]
     Active Substance: GRANISETRON HYDROCHLORIDE
     Route: 065
     Dates: start: 20180903
  79. ZINC. [Concomitant]
     Active Substance: ZINC
     Route: 048
     Dates: start: 20181003, end: 20181008
  80. ZINC. [Concomitant]
     Active Substance: ZINC
     Route: 048
     Dates: start: 20181203, end: 20181219
  81. CALONAL [Concomitant]
     Active Substance: ACETAMINOPHEN
     Route: 048
     Dates: start: 20181116, end: 20181127
  82. REMICADE [Suspect]
     Active Substance: INFLIXIMAB
     Indication: BEHCET^S SYNDROME
     Route: 042
     Dates: start: 20180402, end: 20181113
  83. PREDNISOLONE. [Suspect]
     Active Substance: PREDNISOLONE
     Indication: PRODUCT USED FOR UNKNOWN INDICATION
     Route: 048
     Dates: start: 20180206, end: 20180226
  84. MESALAZINE [Concomitant]
     Active Substance: MESALAMINE
     Route: 048
     Dates: start: 20180105, end: 20180305
  85. MESALAZINE [Concomitant]
     Active Substance: MESALAMINE
     Route: 048
     Dates: start: 20180520, end: 20180521
  86. ALFACALCIDOL [Concomitant]
     Active Substance: ALFACALCIDOL
     Route: 048
     Dates: start: 20171219, end: 20171224
  87. ALFACALCIDOL [Concomitant]
     Active Substance: ALFACALCIDOL
     Route: 048
     Dates: start: 20180105, end: 20180204
  88. ALFACALCIDOL [Concomitant]
     Active Substance: ALFACALCIDOL
     Route: 048
     Dates: start: 20180520, end: 20180604
  89. ZOLPIDEM TARTRATE. [Concomitant]
     Active Substance: ZOLPIDEM TARTRATE
     Route: 048
     Dates: start: 20180430, end: 20180506
  90. CELECOX [Concomitant]
     Active Substance: CELECOXIB
     Route: 048
     Dates: start: 20180105, end: 20180305
  91. BIO-THREE [Concomitant]
     Active Substance: HERBALS
     Route: 048
     Dates: start: 20181203, end: 20181219
  92. OXINORM [Concomitant]
     Route: 048
     Dates: start: 20180709
  93. OXINORM [Concomitant]
     Route: 048
     Dates: start: 20180711
  94. OXINORM [Concomitant]
     Route: 048
     Dates: start: 20180720
  95. OXINORM [Concomitant]
     Route: 048
     Dates: start: 20180820
  96. OXINORM [Concomitant]
     Route: 048
     Dates: start: 20180910
  97. OXINORM [Concomitant]
     Route: 048
     Dates: start: 20181012
  98. OXINORM [Concomitant]
     Route: 048
     Dates: start: 20181015
  99. OXINORM [Concomitant]
     Route: 048
     Dates: start: 20181022
  100. OXINORM [Concomitant]
     Route: 048
     Dates: start: 20181025
  101. OXINORM [Concomitant]
     Route: 048
     Dates: start: 20181027
  102. OXINORM [Concomitant]
     Route: 048
     Dates: start: 20181109
  103. OXINORM [Concomitant]
     Route: 048
     Dates: start: 20181112
  104. LANSOPRAZOLE. [Concomitant]
     Active Substance: LANSOPRAZOLE
     Route: 048
     Dates: start: 20180524, end: 20181127
  105. LANSOPRAZOLE. [Concomitant]
     Active Substance: LANSOPRAZOLE
     Route: 048
     Dates: start: 20181203, end: 20181219
  106. NOVAMIN [Concomitant]
     Route: 065
     Dates: start: 20180525, end: 20180527
  107. NOVAMIN [Concomitant]
     Route: 065
     Dates: start: 20180529, end: 20180813
  108. BAKTAR [Concomitant]
     Active Substance: SULFAMETHOXAZOLE\TRIMETHOPRIM
     Route: 048
     Dates: start: 20180526, end: 20181127
  109. FLORID [Concomitant]
     Active Substance: MICONAZOLE
     Route: 048
     Dates: start: 20180727, end: 20180802
  110. MESALAZINE [Concomitant]
     Active Substance: MESALAMINE
     Route: 048
     Dates: start: 20171219, end: 20171224
  111. COLCHICINE. [Concomitant]
     Active Substance: COLCHICINE
     Route: 048
     Dates: start: 20171219, end: 20171224
  112. ALFACALCIDOL [Concomitant]
     Active Substance: ALFACALCIDOL
     Route: 048
     Dates: start: 20180313, end: 20180319
  113. ALFACALCIDOL [Concomitant]
     Active Substance: ALFACALCIDOL
     Route: 048
     Dates: start: 20180606, end: 20181127
  114. ZOLPIDEM TARTRATE. [Concomitant]
     Active Substance: ZOLPIDEM TARTRATE
     Route: 048
     Dates: start: 20180522
  115. ZOLPIDEM TARTRATE. [Concomitant]
     Active Substance: ZOLPIDEM TARTRATE
     Route: 048
     Dates: start: 20180529
  116. CELECOX [Concomitant]
     Active Substance: CELECOXIB
     Route: 048
     Dates: start: 20180410, end: 20180423
  117. OXINORM [Concomitant]
     Route: 048
     Dates: start: 20180716
  118. OXINORM [Concomitant]
     Route: 048
     Dates: start: 20180802
  119. OXINORM [Concomitant]
     Route: 048
     Dates: start: 20180806
  120. OXINORM [Concomitant]
     Route: 048
     Dates: start: 20180807
  121. OXINORM [Concomitant]
     Route: 048
     Dates: start: 20180808
  122. OXINORM [Concomitant]
     Route: 048
     Dates: start: 20180810
  123. OXINORM [Concomitant]
     Route: 048
     Dates: start: 20180903
  124. OXINORM [Concomitant]
     Route: 048
     Dates: start: 20181029
  125. BROTIZOLAM [Concomitant]
     Active Substance: BROTIZOLAM
     Route: 048
     Dates: start: 20180827
  126. BROTIZOLAM [Concomitant]
     Active Substance: BROTIZOLAM
     Route: 048
     Dates: start: 20180903
  127. LOXOPROFEN SODIUM [Concomitant]
     Active Substance: LOXOPROFEN SODIUM
     Route: 048
     Dates: start: 20181111
  128. PREDNISOLONE. [Suspect]
     Active Substance: PREDNISOLONE
     Indication: PRODUCT USED FOR UNKNOWN INDICATION
     Route: 048
     Dates: start: 20181203, end: 20181219
  129. MESALAZINE [Concomitant]
     Active Substance: MESALAMINE
     Route: 048
     Dates: start: 20181203, end: 20181219
  130. COLCHICINE. [Concomitant]
     Active Substance: COLCHICINE
     Route: 048
     Dates: start: 20171226, end: 20180103
  131. COLCHICINE. [Concomitant]
     Active Substance: COLCHICINE
     Route: 048
     Dates: start: 20180410, end: 20180423
  132. FAMOTIDINE. [Concomitant]
     Active Substance: FAMOTIDINE
     Route: 048
     Dates: start: 20180105, end: 20180305
  133. ALFACALCIDOL [Concomitant]
     Active Substance: ALFACALCIDOL
     Route: 048
     Dates: start: 20171226, end: 20180103
  134. ZOLPIDEM TARTRATE. [Concomitant]
     Active Substance: ZOLPIDEM TARTRATE
     Route: 048
     Dates: start: 20171219, end: 20171224
  135. ZOLPIDEM TARTRATE. [Concomitant]
     Active Substance: ZOLPIDEM TARTRATE
     Route: 048
     Dates: start: 20171226, end: 20180103
  136. FOSAMAC [Concomitant]
     Active Substance: ALENDRONATE SODIUM
     Route: 048
     Dates: start: 20180924, end: 20181217
  137. OXINORM [Concomitant]
     Route: 048
     Dates: start: 20180509
  138. OXINORM [Concomitant]
     Route: 048
     Dates: start: 20180618
  139. OXINORM [Concomitant]
     Route: 048
     Dates: start: 20180813
  140. OXINORM [Concomitant]
     Route: 048
     Dates: start: 20181013
  141. BROTIZOLAM [Concomitant]
     Active Substance: BROTIZOLAM
     Route: 048
     Dates: start: 20180807
  142. URSODEOXYCHOLIC ACID [Concomitant]
     Active Substance: URSODIOL
     Route: 048
     Dates: start: 20180806, end: 20180812
  143. COLCHICINE. [Concomitant]
     Active Substance: COLCHICINE
     Route: 048
     Dates: start: 20180520, end: 20181127
  144. FAMOTIDINE. [Concomitant]
     Active Substance: FAMOTIDINE
     Route: 048
     Dates: start: 20180522, end: 20180528
  145. ALFACALCIDOL [Concomitant]
     Active Substance: ALFACALCIDOL
     Route: 048
     Dates: start: 20181203, end: 20181219
  146. FOSAMAC [Concomitant]
     Active Substance: ALENDRONATE SODIUM
     Route: 048
     Dates: start: 20180416, end: 20180423
  147. BIO-THREE [Concomitant]
     Active Substance: HERBALS
     Route: 048
     Dates: start: 20180427, end: 20181127
  148. OXINORM [Concomitant]
     Route: 048
     Dates: start: 20180704
  149. OXINORM [Concomitant]
     Route: 048
     Dates: start: 20180731
  150. OXINORM [Concomitant]
     Route: 048
     Dates: start: 20180827
  151. OXINORM [Concomitant]
     Route: 048
     Dates: start: 20181017
  152. OXINORM [Concomitant]
     Route: 048
     Dates: start: 20181028
  153. OXINORM [Concomitant]
     Route: 048
     Dates: start: 20181102
  154. MAGCOROL P [Concomitant]
     Active Substance: MAGNESIUM CITRATE
     Route: 065
     Dates: start: 20180523
  155. NOVAMIN [Concomitant]
     Route: 065
     Dates: start: 20181203, end: 20181219
  156. FLORID [Concomitant]
     Active Substance: MICONAZOLE
     Route: 048
     Dates: start: 20180604, end: 20180608
  157. BROTIZOLAM [Concomitant]
     Active Substance: BROTIZOLAM
     Route: 048
     Dates: start: 20180813
  158. BELSOMRA [Concomitant]
     Active Substance: SUVOREXANT
     Route: 048
     Dates: start: 20180621, end: 20180727
  159. BELSOMRA [Concomitant]
     Active Substance: SUVOREXANT
     Route: 048
     Dates: start: 20180910, end: 20181127
  160. CALONAL [Concomitant]
     Active Substance: ACETAMINOPHEN
     Route: 048
     Dates: start: 20181203, end: 20181219
  161. MOSAPRIDE CITRATE [Concomitant]
     Active Substance: MOSAPRIDE CITRATE
     Route: 048
     Dates: start: 20181203, end: 20181219

REACTIONS (1)
  - Pneumocystis jirovecii pneumonia [Recovering/Resolving]

NARRATIVE: CASE EVENT DATE: 20180424
